FAERS Safety Report 7715192-6 (Version None)
Quarter: 2011Q3

REPORT INFORMATION
  Report Type: 
  Country: None (occurrence: None)
  Receive Date: 20110810
  Receipt Date: 20110518
  Transmission Date: 20111222
  Serious: No
  Sender: FDA-Public Use
  Company Number: 1000021039

PATIENT
  Age: 52 Year
  Sex: Female

DRUGS (6)
  1. SAVELLA [Suspect]
     Indication: SCIATICA
     Dosage: 12.5 MG (12.5 MG, 1 IN 1 D), ORAL, 25 MG (12.5 MG, 2 IN 1), ORAL
     Route: 048
     Dates: start: 20110501, end: 20110501
  2. SAVELLA [Suspect]
     Indication: NEURALGIA
     Dosage: 12.5 MG (12.5 MG, 1 IN 1 D), ORAL, 25 MG (12.5 MG, 2 IN 1), ORAL
     Route: 048
     Dates: start: 20110501, end: 20110501
  3. SAVELLA [Suspect]
     Indication: SCIATICA
     Dosage: 12.5 MG (12.5 MG, 1 IN 1 D), ORAL, 25 MG (12.5 MG, 2 IN 1), ORAL
     Route: 048
     Dates: start: 20110501, end: 20110501
  4. SAVELLA [Suspect]
     Indication: NEURALGIA
     Dosage: 12.5 MG (12.5 MG, 1 IN 1 D), ORAL, 25 MG (12.5 MG, 2 IN 1), ORAL
     Route: 048
     Dates: start: 20110501, end: 20110501
  5. SAVELLA [Suspect]
     Indication: NEURALGIA
     Dosage: 50 MG (25 MG, 2 IN 1 D), ORAL
     Route: 048
     Dates: start: 20110501, end: 20110517
  6. SAVELLA [Suspect]
     Indication: SCIATICA
     Dosage: 50 MG (25 MG, 2 IN 1 D), ORAL
     Route: 048
     Dates: start: 20110501, end: 20110517

REACTIONS (6)
  - OEDEMA PERIPHERAL [None]
  - HEADACHE [None]
  - DYSPNOEA [None]
  - INSOMNIA [None]
  - CONSTIPATION [None]
  - BURNING SENSATION [None]
